FAERS Safety Report 10181802 (Version 1)
Quarter: 2014Q2

REPORT INFORMATION
  Report Type: Spontaneous
  Country: US (occurrence: US)
  Receive Date: 20140519
  Receipt Date: 20140519
  Transmission Date: 20141212
  Serious: Yes (Other)
  Sender: FDA-Public Use
  Company Number: US-ELI_LILLY_AND_COMPANY-US201405002093

PATIENT
  Age: 65 Year
  Sex: Male

DRUGS (6)
  1. ALIMTA [Suspect]
     Indication: MESOTHELIOMA
     Dosage: UNK, UNKNOWN
     Route: 065
     Dates: start: 2009
  2. ALIMTA [Suspect]
     Dosage: UNK
     Route: 065
  3. ALIMTA [Suspect]
     Route: 065
  4. CARBOPLATIN [Concomitant]
     Indication: MESOTHELIOMA
     Dosage: UNK, UNKNOWN
     Route: 065
     Dates: start: 2009
  5. CARBOPLATIN [Concomitant]
     Dosage: UNK
     Route: 065
  6. CARBOPLATIN [Concomitant]
     Dosage: UNK
     Route: 065

REACTIONS (3)
  - Pulmonary oedema [Not Recovered/Not Resolved]
  - Malignant neoplasm progression [Unknown]
  - Off label use [Not Recovered/Not Resolved]
